FAERS Safety Report 9844318 (Version 1)
Quarter: 2014Q1

REPORT INFORMATION
  Report Type: Spontaneous
  Country: ES (occurrence: None)
  Receive Date: 20140123
  Receipt Date: 20140123
  Transmission Date: 20141002
  Serious: Yes (Hospitalization)
  Sender: FDA-Public Use
  Company Number: DSM-2014-00037

PATIENT
  Age: 63 Year
  Sex: Male

DRUGS (8)
  1. IXIA [Suspect]
     Indication: HYPERTENSION
     Route: 048
     Dates: start: 20131202, end: 20131203
  2. AMLODIPINO SANDOZ (AMLODIPINE BESILATE) [Concomitant]
  3. NEBIVOLOL PENSA (NEBIVOLOL) (TABLET) [Concomitant]
  4. PLAVIX (CLOPIDOGREL SULFATE) [Concomitant]
  5. PRAVASTATIN (PRAVASTATIN) [Concomitant]
  6. RANITIDINE (RANITIDINE HYDROCHLORIDE) [Concomitant]
  7. TORASEMIDA CINFA (TORASEMIDE) [Concomitant]
  8. TROMALYT (ACETYLSALICYLIC ACID) (PROLONGED-RELEASE CAPSULES) (ACETYLSALICYLIC ACID) [Concomitant]

REACTIONS (7)
  - Respiratory failure [None]
  - Asthenia [None]
  - Back pain [None]
  - Vomiting [None]
  - Nausea [None]
  - Malaise [None]
  - Chest pain [None]
